FAERS Safety Report 6751656-X (Version None)
Quarter: 2010Q2

REPORT INFORMATION
  Report Type: 
  Country: None (occurrence: None)
  Receive Date: 20100602
  Receipt Date: 20100525
  Transmission Date: 20101027
  Serious: Yes (Hospitalization)
  Sender: FDA-Public Use
  Company Number: A0861214A

PATIENT
  Age: 51 Year
  Sex: Male

DRUGS (4)
  1. LAMICTAL [Suspect]
     Route: 048
     Dates: start: 20050101
  2. LAMOTRIGINE [Suspect]
  3. LOPRESSOR [Concomitant]
  4. FIORICET [Concomitant]

REACTIONS (7)
  - ADVERSE EVENT [None]
  - CHEST PAIN [None]
  - CORONARY ARTERY BYPASS [None]
  - MUSCLE SPASMS [None]
  - MYOCARDIAL INFARCTION [None]
  - OXYGEN SATURATION DECREASED [None]
  - PAIN [None]
